FAERS Safety Report 7201716-4 (Version None)
Quarter: 2010Q4

REPORT INFORMATION
  Report Type: 
  Country: None (occurrence: None)
  Receive Date: 20101229
  Receipt Date: 20101217
  Transmission Date: 20110411
  Serious: Yes (Other)
  Sender: FDA-Public Use
  Company Number: AU-ELI_LILLY_AND_COMPANY-AU201012004211

PATIENT
  Age: 58 Year
  Sex: Female

DRUGS (1)
  1. CYMBALTA [Suspect]
     Indication: DEPRESSION
     Dosage: 60 MG, DAILY (1/D)
     Route: 048
     Dates: start: 20091201

REACTIONS (8)
  - ABDOMINAL PAIN UPPER [None]
  - ALOPECIA [None]
  - DIVERTICULITIS [None]
  - DRY SKIN [None]
  - HAIR DISORDER [None]
  - LIVER DISORDER [None]
  - ONYCHOCLASIS [None]
  - WEIGHT INCREASED [None]
